FAERS Safety Report 15403456 (Version 2)
Quarter: 2018Q3

REPORT INFORMATION
  Report Type: Report from Study
  Country: US (occurrence: US)
  Receive Date: 20180919
  Receipt Date: 20180924
  Transmission Date: 20181010
  Serious: Yes (Hospitalization)
  Sender: FDA-Public Use
  Company Number: PHHO2018US010334

PATIENT
  Age: 2 Year
  Sex: Female

DRUGS (9)
  1. INC424A [Suspect]
     Active Substance: RUXOLITINIB
     Dosage: 20 MG, BID
     Route: 048
     Dates: start: 20180716, end: 20180911
  2. PEGASPARGASE [Suspect]
     Active Substance: PEGASPARGASE
     Indication: ACUTE LYMPHOCYTIC LEUKAEMIA
     Dosage: 1375 UNITS D2
     Route: 042
     Dates: start: 20180828, end: 20180828
  3. METHOTREXATE. [Suspect]
     Active Substance: METHOTREXATE
     Indication: ACUTE LYMPHOCYTIC LEUKAEMIA
     Dosage: 55 MG, DAY 1
     Route: 042
     Dates: start: 20180827, end: 20180827
  4. INC424A [Suspect]
     Active Substance: RUXOLITINIB
     Indication: ACUTE LYMPHOCYTIC LEUKAEMIA
     Dosage: 20 MG, BID
     Route: 048
     Dates: start: 20171127, end: 20180520
  5. INC424A [Suspect]
     Active Substance: RUXOLITINIB
     Dosage: 25 MG, BID
     Route: 048
     Dates: start: 20180530, end: 20180619
  6. INC424A [Suspect]
     Active Substance: RUXOLITINIB
     Dosage: 20 MG, BID
     Route: 048
     Dates: start: 20180912
  7. METHOTREXATE. [Suspect]
     Active Substance: METHOTREXATE
     Dosage: 10 MG, D1
     Route: 037
     Dates: start: 20180827, end: 20180827
  8. METHOTREXATE. [Suspect]
     Active Substance: METHOTREXATE
     Dosage: 83 MG, DAY 11
     Route: 042
     Dates: start: 20180906, end: 20180906
  9. VINCRISTINE [Concomitant]
     Active Substance: VINCRISTINE
     Indication: ACUTE LYMPHOCYTIC LEUKAEMIA
     Dosage: 0.83 MG, DAYS 1 AND 11
     Route: 042
     Dates: start: 20180827, end: 20180827

REACTIONS (1)
  - Febrile neutropenia [Recovered/Resolved]

NARRATIVE: CASE EVENT DATE: 20180911
